FAERS Safety Report 6405211-1 (Version None)
Quarter: 2009Q4

REPORT INFORMATION
  Report Type: 
  Country: None (occurrence: None)
  Receive Date: 20091019
  Receipt Date: 20091010
  Transmission Date: 20100525
  Serious: Yes (Hospitalization)
  Sender: FDA-Public Use
  Company Number: PHHY2009CN30830

PATIENT
  Age: 27 Year
  Sex: Female

DRUGS (8)
  1. CARBAMAZEPINE [Suspect]
     Indication: GRAND MAL CONVULSION
     Dosage: 200 MG, UNK
  2. CARBAMAZEPINE [Suspect]
     Dosage: 200 MG, UNK
     Dates: start: 20070101
  3. CHLORPROMAZINE [Concomitant]
     Dosage: 600 MG/DAY
  4. HALOPERIDOL [Concomitant]
  5. PROMETHAZINE [Concomitant]
  6. PERPHENAZINE [Concomitant]
     Dosage: UNK
  7. FLUOROMETHOLONE [Concomitant]
     Dosage: 8 MG, UNK
  8. PREDNISONE [Concomitant]
     Dosage: 10 MG, TID
     Route: 048

REACTIONS (10)
  - DERMATITIS EXFOLIATIVE [None]
  - DRUG ERUPTION [None]
  - EFFUSION [None]
  - LIP BLISTER [None]
  - MENTAL DISORDER [None]
  - PRURITUS GENERALISED [None]
  - PYREXIA [None]
  - RASH MACULAR [None]
  - RASH PAPULAR [None]
  - SKIN EROSION [None]
